FAERS Safety Report 8812243 (Version 2)
Quarter: 2013Q2

REPORT INFORMATION
  Report Type: Spontaneous
  Country: IE (occurrence: IE)
  Receive Date: 20120927
  Receipt Date: 20130606
  Transmission Date: 20140414
  Serious: Yes (Hospitalization)
  Sender: FDA-Public Use
  Company Number: IE-BAXTER-2012BAX017715

PATIENT
  Age: 54 Year
  Sex: Female

DRUGS (14)
  1. LACTATED RINGERS [Suspect]
     Indication: SHORT-BOWEL SYNDROME
     Route: 042
  2. SYNTHAMIN [Suspect]
     Indication: SHORT-BOWEL SYNDROME
     Route: 042
  3. SYNTHAMIN [Suspect]
     Indication: SHORT-BOWEL SYNDROME
     Route: 042
  4. WATER FOR INJECTIONS PH.EUR [Suspect]
     Indication: SHORT-BOWEL SYNDROME
     Route: 042
  5. GLUCOSE [Suspect]
     Indication: SHORT-BOWEL SYNDROME
     Route: 042
  6. MINERALS [Suspect]
     Indication: SHORT-BOWEL SYNDROME
     Route: 042
  7. CERNEVIT [Suspect]
     Indication: SHORT-BOWEL SYNDROME
     Route: 042
  8. CLINOLEIC 20% (BAG) [Suspect]
     Indication: SHORT-BOWEL SYNDROME
     Route: 042
  9. SODIUM CHLORIDE [Suspect]
     Indication: SHORT-BOWEL SYNDROME
  10. SODIUM GLYCEROPHOSPHATE ANHYDROUS [Suspect]
     Indication: SHORT-BOWEL SYNDROME
  11. POTASSIUM CHLORIDE 15% [Suspect]
     Indication: SHORT-BOWEL SYNDROME
  12. CALCIUM CHLORIDE 1MMOL/ML [Suspect]
     Indication: SHORT-BOWEL SYNDROME
  13. MAGNESIUM SULPHATE 50% [Suspect]
     Indication: SHORT-BOWEL SYNDROME
  14. SODIUM CHLORIDE [Suspect]
     Indication: SHORT-BOWEL SYNDROME
     Route: 042

REACTIONS (1)
  - Kidney infection [Recovered/Resolved]
